FAERS Safety Report 21749915 (Version 1)
Quarter: 2022Q4

REPORT INFORMATION
  Report Type: Report from Study
  Country: US (occurrence: US)
  Receive Date: 20221219
  Receipt Date: 20221219
  Transmission Date: 20230113
  Serious: No
  Sender: FDA-Public Use
  Company Number: US-ABBVIE-4196391

PATIENT
  Sex: Female

DRUGS (4)
  1. SKYRIZI [Suspect]
     Active Substance: RISANKIZUMAB-RZAA
     Indication: Psoriasis
     Route: 058
     Dates: start: 202204
  2. PFIZER-BIONTECH COVID-19 VACCINE [Suspect]
     Active Substance: TOZINAMERAN
     Indication: COVID-19 immunisation
     Dosage: FREQUENCY - ONE IN ONCE, THIRD/BOOSTER DOSE
     Route: 030
     Dates: start: 202210, end: 202210
  3. PFIZER-BIONTECH COVID-19 VACCINE [Suspect]
     Active Substance: TOZINAMERAN
     Indication: COVID-19 immunisation
     Dosage: FREQUENCY - ONE IN ONCE, SECOND DOSE
     Route: 030
     Dates: start: 202207, end: 202207
  4. JANSSEN COVID-19 VACCINE [Suspect]
     Active Substance: AD26.COV2.S
     Indication: COVID-19 immunisation
     Dosage: FREQUENCY - ONE IN ONCE, FIRST DOSE
     Route: 030
     Dates: start: 202107, end: 202107

REACTIONS (2)
  - Immune system disorder [Unknown]
  - Acrochordon [Not Recovered/Not Resolved]
